FAERS Safety Report 11502209 (Version 1)
Quarter: 2015Q3

REPORT INFORMATION
  Report Type: Spontaneous
  Country: US (occurrence: US)
  Receive Date: 20150914
  Receipt Date: 20150914
  Transmission Date: 20151125
  Serious: Yes (Other)
  Sender: FDA-Public Use
  Company Number: US-ASTRAZENECA-2015SE88047

PATIENT
  Sex: Female
  Weight: 73 kg

DRUGS (1)
  1. NEXIUM 24HR [Suspect]
     Active Substance: ESOMEPRAZOLE MAGNESIUM
     Indication: DYSPEPSIA
     Route: 048

REACTIONS (3)
  - Feeling abnormal [Unknown]
  - Drug dose omission [Unknown]
  - Dyspepsia [Unknown]
